FAERS Safety Report 12319065 (Version 19)
Quarter: 2021Q2

REPORT INFORMATION
  Report Type: Report from Study
  Country: CA (occurrence: CA)
  Receive Date: 20160429
  Receipt Date: 20210517
  Transmission Date: 20210716
  Serious: Yes (Other)
  Sender: FDA-Public Use
  Company Number: PHHY2016CA016176

PATIENT
  Age: 66 Year
  Sex: Male

DRUGS (7)
  1. SANDOSTATIN [Suspect]
     Active Substance: OCTREOTIDE ACETATE
  2. SANDOSTATIN [Suspect]
     Active Substance: OCTREOTIDE ACETATE
  3. SANDOSTATIN LAR DEPOT [Suspect]
     Active Substance: OCTREOTIDE ACETATE
  4. SANDOSTATIN [Suspect]
     Active Substance: OCTREOTIDE ACETATE
     Indication: CARCINOID TUMOUR
     Dosage: 100 UG, TID
     Route: 058
     Dates: start: 20160125
  5. LISINOPRIL. [Concomitant]
     Active Substance: LISINOPRIL
     Indication: PRODUCT USED FOR UNKNOWN INDICATION
     Dosage: UNK
     Route: 065
  6. SANDOSTATIN LAR DEPOT [Suspect]
     Active Substance: OCTREOTIDE ACETATE
     Indication: CARCINOID TUMOUR
     Dosage: 30 MG, QMO (EVERY 4 WEEKS)
     Route: 030
     Dates: start: 20160203
  7. SANDOSTATIN LAR DEPOT [Suspect]
     Active Substance: OCTREOTIDE ACETATE

REACTIONS (11)
  - Blood pressure increased [Unknown]
  - Blood pressure systolic increased [Unknown]
  - Needle issue [Unknown]
  - Body temperature decreased [Unknown]
  - Postoperative abscess [Recovered/Resolved]
  - Chest pain [Unknown]
  - Solar lentigo [Unknown]
  - Abdominal pain lower [Unknown]
  - Abdominal pain upper [Unknown]
  - Blood pressure diastolic decreased [Unknown]
  - Body temperature increased [Unknown]

NARRATIVE: CASE EVENT DATE: 2016
